FAERS Safety Report 13067779 (Version 1)
Quarter: 2016Q4

REPORT INFORMATION
  Report Type: Spontaneous
  Country: DE (occurrence: DE)
  Receive Date: 20161228
  Receipt Date: 20161228
  Transmission Date: 20170207
  Serious: Yes (Hospitalization)
  Sender: FDA-Public Use
  Company Number: DE-ACCORD-046801

PATIENT
  Age: 36 Year
  Sex: Male

DRUGS (2)
  1. ETOPOSIDE/ETOPOSIDE PHOSPHATE [Concomitant]
     Indication: SEMINOMA
     Dosage: RECEIVED 04 CYCLE
  2. CISPLATIN. [Suspect]
     Active Substance: CISPLATIN
     Indication: SEMINOMA
     Dosage: RECEIVED 04 CYCLE

REACTIONS (1)
  - Cerebral infarction [Recovered/Resolved]
